FAERS Safety Report 9302632 (Version 1)
Quarter: 2013Q2

REPORT INFORMATION
  Report Type: Spontaneous
  Country: US (occurrence: US)
  Receive Date: 20130522
  Receipt Date: 20130522
  Transmission Date: 20140414
  Serious: No
  Sender: FDA-Public Use
  Company Number: US-009507513-1305USA012051

PATIENT
  Age: 28 Year
  Sex: Female
  Weight: 47.17 kg

DRUGS (2)
  1. NUVARING [Suspect]
     Indication: CONTRACEPTION
     Dosage: 3 WEEKS IN 1 WEEK RING FREE BREAK
     Route: 067
     Dates: start: 2010
  2. NUVARING [Suspect]
     Indication: DYSMENORRHOEA

REACTIONS (2)
  - Vaginal haemorrhage [Recovered/Resolved]
  - Vaginal haemorrhage [Unknown]
